FAERS Safety Report 7113420-1 (Version None)
Quarter: 2010Q4

REPORT INFORMATION
  Report Type: 
  Country: None (occurrence: None)
  Receive Date: 20101119
  Receipt Date: 20100930
  Transmission Date: 20110411
  Serious: No
  Sender: FDA-Public Use
  Company Number: A0885053A

PATIENT
  Sex: Male

DRUGS (2)
  1. ARZERRA [Suspect]
     Route: 058
  2. UNKNOWN [Concomitant]

REACTIONS (1)
  - RASH [None]
